FAERS Safety Report 23124695 (Version 1)
Quarter: 2023Q4

REPORT INFORMATION
  Report Type: Spontaneous
  Country: US (occurrence: US)
  Receive Date: 20231030
  Receipt Date: 20231030
  Transmission Date: 20240109
  Serious: No
  Sender: FDA-Public Use
  Company Number: US-OPELLA-2023OHG009810

PATIENT
  Sex: Male

DRUGS (1)
  1. GOLD BOND MEDICATED FOOT [Suspect]
     Active Substance: MENTHOL
     Route: 065

REACTIONS (3)
  - Expired product administered [Unknown]
  - Product physical issue [Unknown]
  - No adverse event [Unknown]
